FAERS Safety Report 9405201 (Version 1)
Quarter: 2013Q3

REPORT INFORMATION
  Report Type: Spontaneous
  Country: MA (occurrence: MA)
  Receive Date: 20130717
  Receipt Date: 20130717
  Transmission Date: 20140515
  Serious: Yes (Death, Hospitalization)
  Sender: FDA-Public Use
  Company Number: PHHY2013MA074835

PATIENT
  Age: 21 Year
  Sex: Male

DRUGS (1)
  1. OLANZAPINE [Suspect]
     Dosage: 10 MG, UNK

REACTIONS (13)
  - Circulatory collapse [Fatal]
  - Catatonia [Unknown]
  - Delirium [Unknown]
  - Hallucination [Unknown]
  - Psychotic disorder [Unknown]
  - Pyrexia [Unknown]
  - Hyperhidrosis [Unknown]
  - Sinus tachycardia [Unknown]
  - Depressed level of consciousness [Unknown]
  - Stupor [Unknown]
  - Agitation [Unknown]
  - Dehydration [Unknown]
  - Leukocytosis [Unknown]
